FAERS Safety Report 9773778 (Version 2)
Quarter: 2013Q4

REPORT INFORMATION
  Report Type: Spontaneous
  Country: JP (occurrence: JP)
  Receive Date: 20131219
  Receipt Date: 20131223
  Transmission Date: 20140711
  Serious: Yes (Hospitalization, Other)
  Sender: FDA-Public Use
  Company Number: JP-JNJFOC-20131209011

PATIENT
  Age: 13 Year
  Sex: Female

DRUGS (8)
  1. LOPEMIN [Suspect]
     Route: 048
  2. LOPEMIN [Suspect]
     Indication: DIARRHOEA
     Route: 048
  3. PRIMPERAN [Concomitant]
     Indication: VOMITING
     Route: 065
  4. PRIMPERAN [Concomitant]
     Indication: DIARRHOEA
     Route: 065
  5. BUSCOPAN [Concomitant]
     Indication: VOMITING
     Route: 065
  6. BUSCOPAN [Concomitant]
     Indication: DIARRHOEA
     Route: 065
  7. LAC-B [Concomitant]
     Indication: VOMITING
     Route: 048
  8. LAC-B [Concomitant]
     Indication: DIARRHOEA
     Route: 048

REACTIONS (4)
  - Subcutaneous emphysema [Recovering/Resolving]
  - Pneumomediastinum [Recovering/Resolving]
  - Pneumoretroperitoneum [Recovering/Resolving]
  - Vomiting [Recovering/Resolving]
